FAERS Safety Report 8216557 (Version 7)
Quarter: 2014Q1

REPORT INFORMATION
  Report Type: Report from Study
  Country: FR (occurrence: FR)
  Receive Date: 20111031
  Receipt Date: 20140124
  Transmission Date: 20141002
  Serious: Yes (Death)
  Sender: FDA-Public Use
  Company Number: FR-PFIZER INC-2011229443

PATIENT
  Age: 43 Year
  Sex: Male
  Weight: 58 kg

DRUGS (16)
  1. CHAMPIX [Suspect]
     Indication: SMOKING CESSATION THERAPY
     Dosage: 1 TABLET OF 0.5 MG DAILY
     Route: 048
     Dates: start: 20110324, end: 20110326
  2. CHAMPIX [Suspect]
     Dosage: 2 TABLETS OF 0.5MG DAILY
     Route: 048
     Dates: start: 20110327, end: 20110330
  3. CHAMPIX [Suspect]
     Dosage: 2 TABLETS OF 0.5 MG 2X/DAY
     Route: 048
     Dates: start: 20110331, end: 20110623
  4. BLINDED PLACEBO [Suspect]
     Indication: SMOKING CESSATION THERAPY
     Dosage: 1 DF, 1X/DAY
     Route: 048
     Dates: start: 20100930, end: 20101002
  5. BLINDED VARENICLINE TARTRATE [Suspect]
     Indication: SMOKING CESSATION THERAPY
     Dosage: 1 DF, 1X/DAY
     Route: 048
     Dates: start: 20100930, end: 20101002
  6. BLINDED PLACEBO [Suspect]
     Dosage: 1 DF, 2X/DAY
     Route: 048
     Dates: start: 20101003, end: 20101006
  7. BLINDED VARENICLINE TARTRATE [Suspect]
     Dosage: 1 DF, 2X/DAY
     Route: 048
     Dates: start: 20101003, end: 20101006
  8. BLINDED PLACEBO [Suspect]
     Dosage: 2 DF, 2X/DAY
     Route: 048
     Dates: start: 20101007, end: 20101223
  9. BLINDED VARENICLINE TARTRATE [Suspect]
     Dosage: 2 DF, 2X/DAY
     Route: 048
     Dates: start: 20101007, end: 20101223
  10. NASONEX [Concomitant]
     Indication: RHINITIS ALLERGIC
     Dosage: 1 DF, 4X/DAY
     Dates: start: 20100107, end: 20110724
  11. IXPRIM [Concomitant]
     Indication: PAIN
     Dosage: 1 DF, 1X/DAY
     Dates: start: 20110113, end: 20110118
  12. TRIZIVIR [Concomitant]
     Indication: HIV INFECTION
     Dosage: 1 DF, 2X/DAY
     Route: 048
     Dates: start: 20030424
  13. IMOVANE [Concomitant]
     Indication: INSOMNIA
     Dosage: 1 DF, 1X/DAY
     Dates: start: 20100107
  14. INEXIUM [Concomitant]
     Indication: GASTROOESOPHAGEAL REFLUX DISEASE
     Dosage: 1 DF, 1X/DAY
     Dates: start: 20100506
  15. LYSANXIA [Concomitant]
     Indication: ANXIETY
     Dosage: 1 DF, 3X/DAY
     Route: 048
     Dates: start: 20110113
  16. AOTAL [Concomitant]
     Indication: ABSTAINS FROM ALCOHOL
     Dosage: 2 DF, 3X/DAY
     Route: 048
     Dates: start: 20110113

REACTIONS (1)
  - Aggression [Fatal]
